FAERS Safety Report 4783974-9 (Version None)
Quarter: 2005Q3

REPORT INFORMATION
  Report Type: 
  Country: None (occurrence: None)
  Receive Date: 20050927
  Receipt Date: 20050813
  Transmission Date: 20060218
  Serious: No
  Sender: FDA-Public Use
  Company Number: USA0508104716

PATIENT
  Age: 28 Year
  Sex: Male

DRUGS (1)
  1. STRATTERA [Suspect]
     Indication: ATTENTION DEFICIT/HYPERACTIVITY DISORDER
     Dosage: 40 MG DAY
     Dates: start: 20050727

REACTIONS (6)
  - EXCITABILITY [None]
  - INSOMNIA [None]
  - MIDDLE INSOMNIA [None]
  - SLEEP DISORDER [None]
  - SLEEP TALKING [None]
  - THINKING ABNORMAL [None]
